FAERS Safety Report 23702143 (Version 1)
Quarter: 2024Q2

REPORT INFORMATION
  Report Type: Spontaneous
  Country: BR (occurrence: BR)
  Receive Date: 20240403
  Receipt Date: 20240403
  Transmission Date: 20240716
  Serious: Yes (Other)
  Sender: FDA-Public Use
  Company Number: BR-002147023-NVSC2024BR070649

PATIENT
  Sex: Female

DRUGS (1)
  1. GILENYA [Suspect]
     Active Substance: FINGOLIMOD HYDROCHLORIDE
     Indication: Product used for unknown indication
     Dosage: UNK
     Route: 065

REACTIONS (8)
  - Multiple sclerosis relapse [Unknown]
  - Gait disturbance [Unknown]
  - Speech disorder [Unknown]
  - Facial asymmetry [Unknown]
  - Dysgraphia [Unknown]
  - Urinary incontinence [Unknown]
  - Central nervous system lesion [Unknown]
  - Fatigue [Unknown]
